FAERS Safety Report 7952288-8 (Version None)
Quarter: 2011Q4

REPORT INFORMATION
  Report Type: 
  Country: None (occurrence: None)
  Receive Date: 20111129
  Receipt Date: 20111114
  Transmission Date: 20120403
  Serious: Yes (Hospitalization)
  Sender: FDA-Public Use
  Company Number: JP-2011-12050

PATIENT
  Age: 79 Year
  Sex: Female

DRUGS (1)
  1. PLETAL [Suspect]
     Indication: CEREBRAL INFARCTION
     Dosage: 200 MG MILLIGRAM(S), DAILY DOSE, ORAL
     Route: 048

REACTIONS (3)
  - HAEMATOMA [None]
  - MUSCLE HAEMORRHAGE [None]
  - ARTERIAL HAEMORRHAGE [None]
